FAERS Safety Report 21908231 (Version 1)
Quarter: 2023Q1

REPORT INFORMATION
  Report Type: Other
  Country: US (occurrence: None)
  Receive Date: 20230125
  Receipt Date: 20230125
  Transmission Date: 20230418
  Serious: No
  Sender: FDA-Public Use
  Company Number: US-ROCHE-3270214

PATIENT
  Age: 66 Year
  Sex: Male

DRUGS (3)
  1. OCREVUS [Suspect]
     Active Substance: OCRELIZUMAB
     Indication: Relapsing-remitting multiple sclerosis
     Dosage: REFILLS:1 YEAR (INITIAL SIG. DISPENSE DOSE (1)300MG VIAL, REFILL:1, AND SUBSEQUENT DOSE SIG. DISPENS
     Route: 042
  2. SOLU-MEDROL [Concomitant]
     Active Substance: METHYLPREDNISOLONE SODIUM SUCCINATE
  3. DIPHENHYDRAMINE [Concomitant]
     Active Substance: DIPHENHYDRAMINE

REACTIONS (2)
  - COVID-19 [Unknown]
  - Hypotension [Unknown]
